FAERS Safety Report 7970471-2 (Version None)
Quarter: 2011Q4

REPORT INFORMATION
  Report Type: 
  Country: None (occurrence: None)
  Receive Date: 20111212
  Receipt Date: 20111208
  Transmission Date: 20120403
  Serious: Yes (Life-Threatening)
  Sender: FDA-Public Use
  Company Number: PHHY2011JP107265

PATIENT
  Age: 63 Year
  Sex: Female

DRUGS (3)
  1. FEMARA [Suspect]
     Indication: BREAST CANCER
     Dosage: 2.5 MG, DAILY
     Route: 048
     Dates: start: 20111129, end: 20111130
  2. ZOMETA [Suspect]
     Indication: METASTASES TO BONE
     Dosage: 4 MG, UNK
     Route: 041
     Dates: start: 20111130
  3. LOXONIN [Suspect]
     Dosage: 60 MG, DAILY
     Route: 048
     Dates: start: 20111129, end: 20111130

REACTIONS (2)
  - PYREXIA [None]
  - HEPATIC FUNCTION ABNORMAL [None]
